FAERS Safety Report 9732934 (Version 1)
Quarter: 2013Q4

REPORT INFORMATION
  Report Type: Spontaneous
  Country: US (occurrence: US)
  Receive Date: 20131204
  Receipt Date: 20131204
  Transmission Date: 20140711
  Serious: No
  Sender: FDA-Public Use
  Company Number: US-SAVIENT-2013S1000025

PATIENT
  Age: 47 Year
  Sex: Male

DRUGS (4)
  1. KRYSTEXXA [Suspect]
     Indication: GOUTY TOPHUS
     Dosage: DRUG ROUTE: INTRAVENOUS
     Route: 042
     Dates: start: 20121231, end: 20121231
  2. KRYSTEXXA [Suspect]
     Dosage: DRUG ROUTE: INTRAVENOUS
     Route: 042
     Dates: start: 20121217, end: 20121217
  3. BENADRYL [Concomitant]
     Indication: ALLERGY PROPHYLAXIS
  4. TYLENOL [Concomitant]
     Indication: ALLERGY PROPHYLAXIS

REACTIONS (1)
  - Therapeutic response decreased [Not Recovered/Not Resolved]
